APPROVED DRUG PRODUCT: FUROSEMIDE
Active Ingredient: FUROSEMIDE
Strength: 10MG/ML
Dosage Form/Route: SOLUTION;ORAL
Application: A070434 | Product #001
Applicant: HIKMA PHARMACEUTICALS USA INC
Approved: Apr 22, 1987 | RLD: No | RS: Yes | Type: RX